FAERS Safety Report 21381840 (Version 1)
Quarter: 2022Q3

REPORT INFORMATION
  Report Type: Report from Study
  Country: CA (occurrence: CA)
  Receive Date: 20220927
  Receipt Date: 20220927
  Transmission Date: 20221027
  Serious: Yes (Other)
  Sender: FDA-Public Use
  Company Number: CA-PFIZER INC-202201182584

PATIENT
  Age: 79 Year
  Sex: Female
  Weight: 90 kg

DRUGS (26)
  1. METHOTREXATE SODIUM [Suspect]
     Active Substance: METHOTREXATE SODIUM
     Route: 065
  2. SILIQ [Suspect]
     Active Substance: BRODALUMAB
     Indication: Psoriasis
     Dosage: 210 MG (1 EVERY 2 WEEKS)
     Route: 058
  3. SILIQ [Suspect]
     Active Substance: BRODALUMAB
     Dosage: 210 MG (1 EVERY 2 WEEKS)
     Route: 058
  4. SILIQ [Suspect]
     Active Substance: BRODALUMAB
     Dosage: 210 MG (1 EVERY 2 WEEKS)
     Route: 058
  5. ACETAMINOPHEN [Concomitant]
     Active Substance: ACETAMINOPHEN
  6. AMLODIPINE [Concomitant]
     Active Substance: AMLODIPINE BESYLATE
     Dosage: UNK, DAILY
  7. ASPIRIN [Concomitant]
     Active Substance: ASPIRIN
  8. BETAMETHASONE DIPROPIONATE\CALCIPOTRIENE [Concomitant]
     Active Substance: BETAMETHASONE DIPROPIONATE\CALCIPOTRIENE
  9. BETAMETHASONE DIPROPIONATE\CALCIPOTRIENE [Concomitant]
     Active Substance: BETAMETHASONE DIPROPIONATE\CALCIPOTRIENE
  10. CALCIUM [Concomitant]
     Active Substance: CALCIUM
  11. DICLOFENAC [Concomitant]
     Active Substance: DICLOFENAC
  12. EUCRISA [Concomitant]
     Active Substance: CRISABOROLE
     Dosage: 2 %
  13. FOLIC ACID [Concomitant]
     Active Substance: FOLIC ACID
  14. GABAPENTIN [Concomitant]
     Active Substance: GABAPENTIN
     Dosage: 300 MG
  15. GLICLAZIDE [Concomitant]
     Active Substance: GLICLAZIDE
  16. GLYBURIDE [Concomitant]
     Active Substance: GLYBURIDE
     Dosage: (1 EVERY 12 HOURS)
  17. IBUPROFEN [Concomitant]
     Active Substance: IBUPROFEN
  18. INFLUENZA VIRUS VACCINE [Concomitant]
     Active Substance: INFLUENZA VIRUS VACCINE
  19. JARDIANCE [Concomitant]
     Active Substance: EMPAGLIFLOZIN
     Dosage: UNK, DAILY
  20. MAGNESIUM [Concomitant]
     Active Substance: MAGNESIUM
  21. SARS-COV-2 VACCINE [Concomitant]
     Indication: COVID-19 immunisation
  22. OMEGA-3 FATTY ACIDS [Concomitant]
     Active Substance: OMEGA-3 FATTY ACIDS
  23. PROLIA [Concomitant]
     Active Substance: DENOSUMAB
     Dosage: 60 MG (1 EVERY 6 MONTHS)
  24. TOZINAMERAN [Concomitant]
     Active Substance: TOZINAMERAN
     Indication: COVID-19 immunisation
  25. ERGOCALCIFEROL [Concomitant]
     Active Substance: ERGOCALCIFEROL
     Dosage: 1000 IU
  26. ZINC [Concomitant]
     Active Substance: ZINC

REACTIONS (19)
  - Immunosuppression [Not Recovered/Not Resolved]
  - Injection site pain [Not Recovered/Not Resolved]
  - Stomatitis [Not Recovered/Not Resolved]
  - Contusion [Not Recovered/Not Resolved]
  - Device issue [Not Recovered/Not Resolved]
  - Diabetes mellitus [Not Recovered/Not Resolved]
  - Diarrhoea [Not Recovered/Not Resolved]
  - Eczema [Not Recovered/Not Resolved]
  - Fall [Not Recovered/Not Resolved]
  - Gait disturbance [Not Recovered/Not Resolved]
  - Joint injury [Not Recovered/Not Resolved]
  - Limb injury [Not Recovered/Not Resolved]
  - Lumbar spinal stenosis [Not Recovered/Not Resolved]
  - Meralgia paraesthetica [Not Recovered/Not Resolved]
  - Product physical consistency issue [Not Recovered/Not Resolved]
  - Psoriasis [Not Recovered/Not Resolved]
  - Skin haemorrhage [Not Recovered/Not Resolved]
  - Therapy cessation [Not Recovered/Not Resolved]
  - Intentional dose omission [Not Recovered/Not Resolved]
